FAERS Safety Report 18949430 (Version 1)
Quarter: 2021Q1

REPORT INFORMATION
  Report Type: Spontaneous
  Country: US (occurrence: US)
  Receive Date: 20210227
  Receipt Date: 20210227
  Transmission Date: 20210420
  Serious: No
  Sender: FDA-Public Use
  Company Number: US-ROCHE-2644517

PATIENT
  Sex: Female

DRUGS (1)
  1. XOLAIR [Suspect]
     Active Substance: OMALIZUMAB
     Indication: IDIOPATHIC URTICARIA
     Dosage: FIRST DOSE OF OMALIZUMAB (XOLAIR) WAS ADMINISTERED ON 04/DEC/2019.
     Route: 058
     Dates: start: 20191204

REACTIONS (1)
  - Hypertension [Unknown]
